FAERS Safety Report 13758925 (Version 1)
Quarter: 2017Q3

REPORT INFORMATION
  Report Type: Spontaneous
  Country: HR (occurrence: HR)
  Receive Date: 20170717
  Receipt Date: 20170717
  Transmission Date: 20171127
  Serious: Yes (Other)
  Sender: FDA-Public Use
  Company Number: HR-TEVA-785579ACC

PATIENT
  Age: 73 Year
  Sex: Female

DRUGS (2)
  1. DONEPEZIL PLIVA [Suspect]
     Active Substance: DONEPEZIL
     Route: 048
     Dates: start: 20170403
  2. VELAFAX TABLET 37.5 MG [Suspect]
     Active Substance: VENLAFAXINE HYDROCHLORIDE
     Route: 048
     Dates: start: 20170403

REACTIONS (4)
  - Hyperhidrosis [Unknown]
  - Pallor [Unknown]
  - Accidental overdose [Unknown]
  - Asthenia [Unknown]

NARRATIVE: CASE EVENT DATE: 20170406
